FAERS Safety Report 4985916-X (Version None)
Quarter: 2006Q2

REPORT INFORMATION
  Report Type: 
  Country: None (occurrence: None)
  Receive Date: 20060421
  Receipt Date: 20060411
  Transmission Date: 20061013
  Serious: Yes (Hospitalization)
  Sender: FDA-Public Use
  Company Number: FR200604001581

PATIENT
  Age: 73 Year
  Sex: Male

DRUGS (9)
  1. GEMZAR [Suspect]
     Indication: PANCREATIC CARCINOMA
     Dosage: 1600 MG, OTHER, INTRAVENOUS
     Route: 042
     Dates: start: 20060109, end: 20060123
  2. ELOXATINE /FRA/ (OXALIPLATIN) [Concomitant]
  3. AMARYL [Concomitant]
  4. XANAX /USA/ (ALPRAZOLAM) [Concomitant]
  5. TENORDATE (ATENOLOL, NIFEDIPINE) [Concomitant]
  6. CREON [Concomitant]
  7. METHOTREXATE [Concomitant]
  8. SPASFON (PHLOROGLUCINOL, TRIMETHYLPHLOROGLUCINOL) [Concomitant]
  9. DAFALGAN /FRA/ (PARACETAMOL) [Concomitant]

REACTIONS (4)
  - GUILLAIN-BARRE SYNDROME [None]
  - QUADRIPARESIS [None]
  - URINARY TRACT INFECTION [None]
  - VENOUS THROMBOSIS [None]
